FAERS Safety Report 5143048-4 (Version None)
Quarter: 2006Q4

REPORT INFORMATION
  Report Type: 
  Country: None (occurrence: None)
  Receive Date: 20061103
  Receipt Date: 20060921
  Transmission Date: 20070319
  Serious: Yes (Death, Other)
  Sender: FDA-Public Use
  Company Number: US-ELI_LILLY_AND_COMPANY-US200609005674

PATIENT
  Age: 51 Year
  Sex: Male
  Weight: 106.58 kg

DRUGS (1)
  1. ZYPREXA [Suspect]
     Indication: SCHIZOPHRENIA
     Dates: start: 19950101, end: 20050101

REACTIONS (3)
  - DEATH [None]
  - DIABETES MELLITUS [None]
  - PANCREATITIS [None]
